FAERS Safety Report 10072262 (Version 3)
Quarter: 2014Q3

REPORT INFORMATION
  Report Type: Spontaneous
  Country: FR (occurrence: FR)
  Receive Date: 20140411
  Receipt Date: 20140908
  Transmission Date: 20150326
  Serious: Yes (Hospitalization)
  Sender: FDA-Public Use
  Company Number: PHHY2014FR043473

PATIENT
  Age: 38 Year
  Sex: Female

DRUGS (6)
  1. TRIATEC [Concomitant]
     Active Substance: RAMIPRIL
     Indication: HYPERTENSION
     Dosage: 2.5 MG, QD
     Route: 048
     Dates: end: 20120608
  2. VOTUBIA [Suspect]
     Active Substance: EVEROLIMUS
     Indication: ANGIOMYOLIPOMA
     Dosage: 10 MG, QD
     Route: 048
     Dates: start: 201205, end: 201403
  3. ZYPREXA [Suspect]
     Active Substance: OLANZAPINE
     Indication: AUTISM
     Dosage: 5 MG, TID
     Route: 048
  4. ESIDREX [Concomitant]
     Active Substance: HYDROCHLOROTHIAZIDE
     Indication: HYPERTENSION
     Dosage: 12.5 MG, QD
     Dates: start: 20131115
  5. CRESTOR [Concomitant]
     Active Substance: ROSUVASTATIN CALCIUM
     Indication: HYPERCHOLESTEROLAEMIA
     Dosage: 5 MG, QD
     Route: 048
     Dates: start: 2013
  6. TRIATEC [Concomitant]
     Active Substance: RAMIPRIL
     Dosage: 5 MG, QD
     Route: 048
     Dates: start: 20120608

REACTIONS (8)
  - Gait disturbance [Unknown]
  - Agitation [Unknown]
  - Hypercholesterolaemia [Recovered/Resolved with Sequelae]
  - Anaemia [Not Recovered/Not Resolved]
  - Oedema peripheral [Recovered/Resolved]
  - Hypertension [Not Recovered/Not Resolved]
  - Respiratory tract infection [Recovered/Resolved]
  - Cerebrovascular accident [Not Recovered/Not Resolved]

NARRATIVE: CASE EVENT DATE: 201404
